FAERS Safety Report 7364279-9 (Version None)
Quarter: 2011Q1

REPORT INFORMATION
  Report Type: 
  Country: None (occurrence: None)
  Receive Date: 20110321
  Receipt Date: 20110311
  Transmission Date: 20110831
  Serious: Yes (Hospitalization)
  Sender: FDA-Public Use
  Company Number: B0698893A

PATIENT
  Age: 66 Year
  Sex: Male

DRUGS (7)
  1. AVANDIA [Suspect]
     Indication: DIABETES MELLITUS
     Dosage: 8MG PER DAY
     Route: 048
     Dates: start: 20031223, end: 20060504
  2. AVANDAMET [Suspect]
     Indication: DIABETES MELLITUS
     Route: 048
     Dates: start: 20051219, end: 20070302
  3. ASPIRIN [Concomitant]
  4. AGGRENOX [Concomitant]
  5. TOPROL-XL [Concomitant]
  6. LOVENOX [Concomitant]
  7. METFORMIN [Concomitant]

REACTIONS (3)
  - HYPOAESTHESIA [None]
  - MYOCARDIAL INFARCTION [None]
  - ACUTE CORONARY SYNDROME [None]
